FAERS Safety Report 8511454-3 (Version None)
Quarter: 2012Q3

REPORT INFORMATION
  Report Type: 
  Country: None (occurrence: None)
  Receive Date: 20120716
  Receipt Date: 20120713
  Transmission Date: 20120928
  Serious: Yes (Other)
  Sender: FDA-Public Use
  Company Number: US-PFIZER INC-2012169758

PATIENT
  Sex: Female
  Weight: 59.41 kg

DRUGS (6)
  1. TRAZODONE [Concomitant]
     Indication: ANXIETY
     Dosage: 50 MG, 3X/DAY
  2. EFFEXOR XR [Suspect]
     Dosage: 75 MG, DAILY
  3. HYDROCODONE [Concomitant]
     Indication: GAIT DISTURBANCE
     Dosage: 3/500 MG FOUR TIMES A DAY
  4. CARISOPRODOL [Concomitant]
     Indication: MUSCLE RELAXANT THERAPY
     Dosage: 350 MG, 2X/DAY
  5. MELOXICAM [Concomitant]
     Indication: ANTIINFLAMMATORY THERAPY
     Dosage: 15 MG, DAILY
  6. TRAZODONE [Concomitant]
     Indication: DEPRESSION

REACTIONS (5)
  - CONFUSIONAL STATE [None]
  - DISTURBANCE IN ATTENTION [None]
  - CRYING [None]
  - HYPOTENSION [None]
  - STRESS [None]
